FAERS Safety Report 14746688 (Version 6)
Quarter: 2018Q4

REPORT INFORMATION
  Report Type: Spontaneous
  Country: US (occurrence: US)
  Receive Date: 20180411
  Receipt Date: 20181206
  Transmission Date: 20190204
  Serious: Yes (Other)
  Sender: FDA-Public Use
  Company Number: US-ASTRAZENECA-2018SE42876

PATIENT
  Age: 72 Year
  Sex: Female
  Weight: 77.6 kg

DRUGS (33)
  1. BISOPROLOL FUMARATE. [Concomitant]
     Active Substance: BISOPROLOL FUMARATE
     Indication: BLOOD PRESSURE MEASUREMENT
     Route: 065
     Dates: start: 200601
  2. PROAIR HFA [Concomitant]
     Active Substance: ALBUTEROL SULFATE
     Indication: DYSPNOEA
     Dosage: INHALE 2 PUFF USING INHALER EVERY SIX HOURS
     Route: 055
     Dates: start: 20150316
  3. RAMIPRIL. [Concomitant]
     Active Substance: RAMIPRIL
  4. TYLENOL [Concomitant]
     Active Substance: ACETAMINOPHEN
     Indication: PAIN
     Route: 065
     Dates: start: 200805
  5. MECLIZINE [Concomitant]
     Active Substance: MECLIZINE HYDROCHLORIDE
     Indication: VERTIGO
     Route: 065
     Dates: start: 201103
  6. HYDROCHLOROTHIAZIDE. [Concomitant]
     Active Substance: HYDROCHLOROTHIAZIDE
     Indication: BLOOD PRESSURE MEASUREMENT
     Dosage: 1.0DF AS REQUIRED
  7. FAMOTIDINE. [Concomitant]
     Active Substance: FAMOTIDINE
     Route: 065
     Dates: start: 2016, end: 2017
  8. NEXIUM [Suspect]
     Active Substance: ESOMEPRAZOLE MAGNESIUM
     Indication: GASTROOESOPHAGEAL REFLUX DISEASE
     Route: 048
     Dates: start: 20110722
  9. ELIQUIS [Concomitant]
     Active Substance: APIXABAN
     Indication: THROMBOSIS
     Route: 065
     Dates: start: 2018
  10. LIPITOR [Concomitant]
     Active Substance: ATORVASTATIN CALCIUM
     Indication: BLOOD CHOLESTEROL
     Route: 048
     Dates: start: 201112
  11. ASPIRIN. [Concomitant]
     Active Substance: ASPIRIN
     Route: 048
  12. DOCUSATE SODIUM. [Concomitant]
     Active Substance: DOCUSATE SODIUM
  13. ACETAMINOPHEN. [Concomitant]
     Active Substance: ACETAMINOPHEN
  14. NEXIUM [Suspect]
     Active Substance: ESOMEPRAZOLE MAGNESIUM
     Indication: GASTROOESOPHAGEAL REFLUX DISEASE
     Dosage: GENERIC
     Route: 065
     Dates: start: 2016
  15. PRILOSEC [Suspect]
     Active Substance: OMEPRAZOLE MAGNESIUM
     Indication: GASTROOESOPHAGEAL REFLUX DISEASE
     Route: 048
     Dates: start: 1996, end: 2003
  16. NITROSTAT [Concomitant]
     Active Substance: NITROGLYCERIN
     Indication: CHEST PAIN
     Route: 065
     Dates: start: 201205, end: 201307
  17. LOVAZA [Concomitant]
     Active Substance: OMEGA-3-ACID ETHYL ESTERS
  18. TAPAZOLE [Concomitant]
     Active Substance: METHIMAZOLE
     Route: 048
  19. AMOXICILLIN. [Concomitant]
     Active Substance: AMOXICILLIN
     Route: 048
     Dates: start: 20131122
  20. PANTOPRAZOLE [Concomitant]
     Active Substance: PANTOPRAZOLE
  21. NEXIUM [Suspect]
     Active Substance: ESOMEPRAZOLE MAGNESIUM
     Indication: GASTROOESOPHAGEAL REFLUX DISEASE
     Route: 048
     Dates: start: 2003, end: 2016
  22. PRILOSEC [Suspect]
     Active Substance: OMEPRAZOLE MAGNESIUM
     Indication: GASTROOESOPHAGEAL REFLUX DISEASE
     Route: 048
     Dates: start: 19960715
  23. VITAMIN D [Concomitant]
     Active Substance: CHOLECALCIFEROL
     Route: 065
     Dates: start: 200805
  24. RAMIPRIL. [Concomitant]
     Active Substance: RAMIPRIL
     Indication: BLOOD PRESSURE MEASUREMENT
     Route: 065
     Dates: start: 201312
  25. MECLIZINE [Concomitant]
     Active Substance: MECLIZINE HYDROCHLORIDE
     Indication: VERTIGO
  26. HYDROCHLOROTHIAZIDE. [Concomitant]
     Active Substance: HYDROCHLOROTHIAZIDE
     Indication: BLOOD PRESSURE MEASUREMENT
     Route: 065
     Dates: start: 200703
  27. VITAMIN D3 [Concomitant]
     Active Substance: CHOLECALCIFEROL
     Route: 048
  28. NASONEX [Concomitant]
     Active Substance: MOMETASONE FUROATE
     Indication: NASAL CONGESTION
     Route: 045
     Dates: start: 200805
  29. ZEBETA [Concomitant]
     Active Substance: BISOPROLOL FUMARATE
     Indication: BLOOD PRESSURE MEASUREMENT
     Route: 065
     Dates: start: 200805
  30. ALBUTEROL-IPRATROPIUM [Concomitant]
     Active Substance: ALBUTEROL\IPRATROPIUM
  31. OXYCODONE [Concomitant]
     Active Substance: OXYCODONE
  32. ATIVAN [Concomitant]
     Active Substance: LORAZEPAM
     Indication: ANXIETY
     Route: 065
     Dates: start: 2010
  33. METHIMAZOLE. [Concomitant]
     Active Substance: METHIMAZOLE
     Route: 065

REACTIONS (5)
  - Renal failure [Unknown]
  - Chronic kidney disease [Not Recovered/Not Resolved]
  - Nephrogenic anaemia [Unknown]
  - Acute kidney injury [Unknown]
  - Hyperparathyroidism secondary [Unknown]

NARRATIVE: CASE EVENT DATE: 2004
